FAERS Safety Report 5497776-1 (Version None)
Quarter: 2007Q4

REPORT INFORMATION
  Report Type: 
  Country: None (occurrence: None)
  Receive Date: 20071025
  Receipt Date: 20070423
  Transmission Date: 20080405
  Serious: No
  Sender: FDA-Public Use
  Company Number: A0640996A

PATIENT
  Age: 18 Year
  Sex: Male
  Weight: 81.8 kg

DRUGS (5)
  1. ADVAIR DISKUS 100/50 [Suspect]
     Indication: ASTHMA
     Dosage: 1PUFF PER DAY
     Route: 055
     Dates: start: 20030101
  2. ALLEGRA [Concomitant]
     Indication: ASTHMA
     Dosage: 60MG PER DAY
     Route: 048
     Dates: start: 20030101
  3. RITALIN [Concomitant]
     Indication: ATTENTION DEFICIT/HYPERACTIVITY DISORDER
     Route: 048
     Dates: start: 19960101
  4. ACCUTANE [Concomitant]
     Indication: ACNE
     Dates: start: 20061001, end: 20070301
  5. SINGULAIR [Concomitant]
     Indication: ASTHMA
     Dosage: 10MG PER DAY
     Route: 048
     Dates: start: 20030101

REACTIONS (2)
  - COUGH [None]
  - PHARMACEUTICAL PRODUCT COMPLAINT [None]
